FAERS Safety Report 8448159-3 (Version None)
Quarter: 2012Q2

REPORT INFORMATION
  Report Type: 
  Country: None (occurrence: None)
  Receive Date: 20120613
  Receipt Date: 20120601
  Transmission Date: 20120825
  Serious: Yes (Other)
  Sender: FDA-Public Use
  Company Number: 2011MA002615

PATIENT
  Sex: Male

DRUGS (10)
  1. RANITIDINE [Concomitant]
  2. METOCLOPRAMIDE HCL [Suspect]
     Dosage: 10 MG;QID;PO
     Route: 048
     Dates: start: 19940101, end: 20050601
  3. FAMOTIDINE [Concomitant]
  4. DOXEPIN [Concomitant]
  5. LOVASTATIN [Concomitant]
  6. SERTRALINE HYDROCHLORIDE [Concomitant]
  7. SALSALATE [Concomitant]
  8. SIMVASTATIN [Concomitant]
  9. METHOCARBAMOL [Concomitant]
  10. OMEPRAZOLE [Concomitant]

REACTIONS (9)
  - DYSTONIA [None]
  - TREMOR [None]
  - ECONOMIC PROBLEM [None]
  - EMOTIONAL DISORDER [None]
  - EXTRAPYRAMIDAL DISORDER [None]
  - AKATHISIA [None]
  - TARDIVE DYSKINESIA [None]
  - MOVEMENT DISORDER [None]
  - FAMILY STRESS [None]
